FAERS Safety Report 25335167 (Version 1)
Quarter: 2025Q2

REPORT INFORMATION
  Report Type: Spontaneous
  Country: US (occurrence: US)
  Receive Date: 20250520
  Receipt Date: 20250520
  Transmission Date: 20250717
  Serious: No
  Sender: AMGEN
  Company Number: US-AMGEN-USASP2025097365

PATIENT
  Age: 65 Year
  Sex: Female

DRUGS (1)
  1. EVENITY [Suspect]
     Active Substance: ROMOSOZUMAB-AQQG
     Indication: Osteoporosis
     Route: 065
     Dates: start: 2025

REACTIONS (7)
  - Gait disturbance [Unknown]
  - Peripheral swelling [Unknown]
  - Blood parathyroid hormone increased [Unknown]
  - Pain [Unknown]
  - Fracture pain [Unknown]
  - Decreased appetite [Unknown]
  - Limb discomfort [Unknown]

NARRATIVE: CASE EVENT DATE: 20250101
